FAERS Safety Report 5675377-X (Version None)
Quarter: 2008Q1

REPORT INFORMATION
  Report Type: 
  Country: None (occurrence: None)
  Receive Date: 20080320
  Receipt Date: 20080318
  Transmission Date: 20080703
  Serious: Yes (Death)
  Sender: FDA-Public Use
  Company Number: JP-BOEHRINGER INGELHEIM GMBH, GERMANY-2008-BP-04187NB

PATIENT
  Age: 7 Decade
  Sex: Male

DRUGS (4)
  1. BI-SIFROL TABLETS [Suspect]
     Route: 065
  2. CARBIDOPA AND LEVODOPA [Suspect]
     Indication: PARKINSON'S DISEASE
     Route: 065
  3. DOPS [Suspect]
     Indication: FREEZING PHENOMENON
     Route: 065
  4. DOPAMINE AGONIST [Suspect]
     Indication: PARKINSON'S DISEASE
     Route: 065

REACTIONS (1)
  - PLEURAL EFFUSION [None]
